FAERS Safety Report 6251583-0 (Version None)
Quarter: 2009Q2

REPORT INFORMATION
  Report Type: 
  Country: None (occurrence: None)
  Receive Date: 20090630
  Receipt Date: 20090624
  Transmission Date: 20091009
  Serious: Yes (Hospitalization)
  Sender: FDA-Public Use
  Company Number: US-ELI_LILLY_AND_COMPANY-US200902001743

PATIENT
  Sex: Female
  Weight: 87.982 kg

DRUGS (16)
  1. BYETTA [Suspect]
     Indication: TYPE 2 DIABETES MELLITUS
     Dosage: 5 UG, UNK
     Route: 058
     Dates: start: 20080820, end: 20080904
  2. BYETTA [Suspect]
     Dosage: 10 UG, 2/D
     Route: 058
     Dates: start: 20080904, end: 20090101
  3. COUMADIN [Concomitant]
     Dosage: 3 MG, UNK
  4. ASPIRIN [Concomitant]
     Dosage: 81 MG, UNK
  5. CIPRO [Concomitant]
     Dosage: UNK, 2/D
  6. LEVEMIR [Concomitant]
     Indication: TYPE 2 DIABETES MELLITUS
     Dosage: 35 U, EACH MORNING
  7. LEVEMIR [Concomitant]
     Dosage: 25 U, EACH EVENING
  8. NEXIUM [Concomitant]
     Dosage: 40 MG, UNK
  9. CALTRATE [Concomitant]
     Dosage: 600 MG, UNK
  10. CADUET [Concomitant]
     Indication: HYPERTENSION
  11. ALLOPURINOL [Concomitant]
     Indication: BLOOD URIC ACID
  12. SYNTHROID [Concomitant]
     Dosage: 50 MG, UNK
  13. ORAL ANTIDIABETICS [Concomitant]
     Indication: TYPE 2 DIABETES MELLITUS
     Dosage: 50 MG, DAILY (1/D)
  14. NEBIVOLOL [Concomitant]
     Indication: HYPERTENSION
  15. DARVOCET-N 100 [Concomitant]
  16. ASTELIN [Concomitant]
     Indication: HYPERSENSITIVITY
     Route: 045

REACTIONS (4)
  - BACK PAIN [None]
  - CHOLELITHIASIS [None]
  - PANCREATITIS [None]
  - WEIGHT DECREASED [None]
